FAERS Safety Report 5899426-9 (Version None)
Quarter: 2008Q3

REPORT INFORMATION
  Report Type: 
  Country: None (occurrence: None)
  Receive Date: 20080924
  Receipt Date: 20080915
  Transmission Date: 20090109
  Serious: Yes (Hospitalization)
  Sender: FDA-Public Use
  Company Number: 2008BI019495

PATIENT
  Age: 65 Year
  Sex: Female

DRUGS (2)
  1. AVONEX [Suspect]
     Indication: MULTIPLE SCLEROSIS
     Dosage: IM; 30 UG; QW;IM
     Route: 030
     Dates: start: 20010501
  2. AVONEX [Suspect]
     Indication: MULTIPLE SCLEROSIS
     Dosage: IM; 30 UG; QW;IM
     Route: 030
     Dates: start: 20060801

REACTIONS (4)
  - ANAEMIA [None]
  - PELVIC HAEMATOMA [None]
  - POST PROCEDURAL HAEMATOMA [None]
  - STRESS URINARY INCONTINENCE [None]
